FAERS Safety Report 4988190-3 (Version None)
Quarter: 2006Q2

REPORT INFORMATION
  Report Type: 
  Country: None (occurrence: None)
  Receive Date: 20060501
  Receipt Date: 20041004
  Transmission Date: 20061013
  Serious: Yes (Life-Threatening, Hospitalization, Disabling, Other)
  Sender: FDA-Public Use
  Company Number: US-MERCK-0410USA00556

PATIENT
  Age: 68 Year
  Sex: Female
  Weight: 77 kg

DRUGS (7)
  1. SYNTHROID [Concomitant]
     Route: 048
  2. TRIAMTERENE [Concomitant]
     Route: 048
  3. HYDROCHLOROTHIAZIDE [Concomitant]
     Route: 048
  4. VIOXX [Suspect]
     Indication: ARTHRITIS
     Route: 048
     Dates: start: 20030601, end: 20031201
  5. VIOXX [Suspect]
     Route: 048
     Dates: start: 20040301, end: 20040401
  6. VIOXX [Suspect]
     Indication: JOINT SWELLING
     Route: 048
     Dates: start: 20030601, end: 20031201
  7. VIOXX [Suspect]
     Route: 048
     Dates: start: 20040301, end: 20040401

REACTIONS (4)
  - CEREBROVASCULAR ACCIDENT [None]
  - CONVULSION [None]
  - GALLBLADDER DISORDER [None]
  - TRANSIENT ISCHAEMIC ATTACK [None]
